FAERS Safety Report 21162343 (Version 2)
Quarter: 2022Q3

REPORT INFORMATION
  Report Type: Spontaneous
  Country: US (occurrence: US)
  Receive Date: 20220802
  Receipt Date: 20220803
  Transmission Date: 20221027
  Serious: No
  Sender: FDA-Public Use
  Company Number: US-PFIZER INC-202201018327

PATIENT
  Age: 65 Year
  Sex: Female

DRUGS (1)
  1. PAXLOVID [Suspect]
     Active Substance: NIRMATRELVIR\RITONAVIR
     Indication: COVID-19 treatment
     Dosage: UNK, DAILY (5 DAYS THING, 30 TABLETS IN THE 5 WITH 6 TABLETS, 5 DAYS WITH THE PILLS 30 PILLS TOTAL)

REACTIONS (2)
  - Cough [Unknown]
  - Off label use [Unknown]
